FAERS Safety Report 7415937-9 (Version None)
Quarter: 2011Q2

REPORT INFORMATION
  Report Type: 
  Country: None (occurrence: None)
  Receive Date: 20110414
  Receipt Date: 20110406
  Transmission Date: 20111010
  Serious: Yes (Hospitalization, Other)
  Sender: FDA-Public Use
  Company Number: PHHY2011US28630

PATIENT
  Age: 75 Year
  Sex: Female

DRUGS (4)
  1. METFORMIN HCL [Suspect]
     Indication: DIABETES MELLITUS
  2. ACETAMINOPHEN [Concomitant]
  3. OXYCODONE [Concomitant]
  4. METRONIDAZOLE [Concomitant]

REACTIONS (11)
  - PANCREATITIS ACUTE [None]
  - HYPOTHERMIA [None]
  - URINARY TRACT INFECTION [None]
  - HYPOGLYCAEMIA [None]
  - OLIGURIA [None]
  - LACTIC ACIDOSIS [None]
  - CLOSTRIDIUM DIFFICILE COLITIS [None]
  - CONFUSIONAL STATE [None]
  - ACIDOSIS [None]
  - SHOCK [None]
  - DECREASED APPETITE [None]
